FAERS Safety Report 10885763 (Version 1)
Quarter: 2015Q1

REPORT INFORMATION
  Report Type: Other
  Country: US (occurrence: US)
  Receive Date: 20150304
  Receipt Date: 20150304
  Transmission Date: 20150721
  Serious: Yes (Hospitalization, Other)
  Sender: FDA-Public Use
  Company Number: US-ENDO PHARMACEUTICALS INC-NAPR20150007

PATIENT
  Age: 71 Year
  Sex: Male

DRUGS (2)
  1. NAPROXEN TABLETS [Suspect]
     Active Substance: NAPROXEN
     Indication: OROPHARYNGEAL PAIN
     Route: 065
  2. NAPROXEN TABLETS [Suspect]
     Active Substance: NAPROXEN
     Indication: ARTHRALGIA

REACTIONS (2)
  - Gastrointestinal haemorrhage [None]
  - Thrombocytopenia [Recovered/Resolved]
